FAERS Safety Report 8496947-X (Version None)
Quarter: 2012Q3

REPORT INFORMATION
  Report Type: 
  Country: None (occurrence: None)
  Receive Date: 20120709
  Receipt Date: 20120625
  Transmission Date: 20120928
  Serious: Yes (Hospitalization)
  Sender: FDA-Public Use
  Company Number: NL-MEDIMMUNE-MEDI-0013823

PATIENT
  Age: 5 Month
  Sex: Male
  Weight: 7.4 kg

DRUGS (4)
  1. SYNAGIS [Suspect]
     Route: 030
     Dates: start: 20120412, end: 20120412
  2. SYNAGIS [Suspect]
     Route: 030
     Dates: start: 20111026, end: 20111026
  3. SYNAGIS [Suspect]
     Route: 030
     Dates: start: 20110930, end: 20110930
  4. SYNAGIS [Suspect]
     Indication: PREMATURE BABY
     Route: 030
     Dates: start: 20110902, end: 20110902

REACTIONS (2)
  - HYPOPHAGIA [None]
  - DECREASED APPETITE [None]
